FAERS Safety Report 5256998-5 (Version None)
Quarter: 2007Q1

REPORT INFORMATION
  Report Type: 
  Country: None (occurrence: None)
  Receive Date: 20070307
  Receipt Date: 20070306
  Transmission Date: 20070707
  Serious: No
  Sender: FDA-Public Use
  Company Number: US-GLAXOSMITHKLINE-A0622878A

PATIENT
  Age: 64 Year
  Sex: Male

DRUGS (1)
  1. CONTAC 12 HOUR [Suspect]
     Route: 048
     Dates: start: 20061001

REACTIONS (4)
  - BENIGN PROSTATIC HYPERPLASIA [None]
  - DYSURIA [None]
  - PROSTATIC SPECIFIC ANTIGEN INCREASED [None]
  - URINARY RETENTION [None]
